FAERS Safety Report 7374414-4 (Version None)
Quarter: 2011Q1

REPORT INFORMATION
  Report Type: 
  Country: None (occurrence: None)
  Receive Date: 20110325
  Receipt Date: 20110316
  Transmission Date: 20110831
  Serious: Yes (Death, Hospitalization, Other)
  Sender: FDA-Public Use
  Company Number: TW-JNJFOC-20110307557

PATIENT
  Age: 72 Year
  Sex: Male
  Weight: 74.39 kg

DRUGS (2)
  1. ULTRACET [Suspect]
     Indication: ANALGESIC THERAPY
     Route: 048
  2. MORPHINE [Suspect]
     Indication: ANALGESIC THERAPY
     Route: 065

REACTIONS (13)
  - VOMITING [None]
  - OXYGEN SATURATION DECREASED [None]
  - DIZZINESS [None]
  - OLIGURIA [None]
  - INSOMNIA [None]
  - HEADACHE [None]
  - BACK PAIN [None]
  - THIRST [None]
  - HYPOTENSION [None]
  - PYREXIA [None]
  - PLEURAL EFFUSION [None]
  - OESOPHAGEAL RUPTURE [None]
  - CHEST PAIN [None]
